FAERS Safety Report 11325303 (Version 1)
Quarter: 2015Q3

REPORT INFORMATION
  Report Type: Report from Study
  Country: DE (occurrence: DE)
  Receive Date: 20150730
  Receipt Date: 20150730
  Transmission Date: 20151125
  Serious: Yes (Life-Threatening, Hospitalization, Other)
  Sender: FDA-Public Use
  Company Number: DE-BAXALTA-2013BAX008445

PATIENT
  Age: 21 Year
  Sex: Female
  Weight: 69 kg

DRUGS (15)
  1. HUMAN PROTEIN C [Suspect]
     Active Substance: PROTEIN C
     Dosage: 2000 IU, 3X A DAY
     Route: 042
     Dates: start: 20130220
  2. HUMAN PROTEIN C [Suspect]
     Active Substance: PROTEIN C
     Dosage: 2000 IU, 2X A DAY
     Route: 042
     Dates: start: 20130308, end: 20130309
  3. HUMAN PROTEIN C [Suspect]
     Active Substance: PROTEIN C
     Dosage: 3000 IU, 1X A DAY
     Route: 042
     Dates: start: 20130226, end: 20130226
  4. HUMAN PROTEIN C [Suspect]
     Active Substance: PROTEIN C
     Dosage: 3000 IU, 1X A DAY
     Route: 042
     Dates: start: 20130315
  5. HUMAN PROTEIN C [Suspect]
     Active Substance: PROTEIN C
     Dosage: 2000 IU, 2X A DAY
     Route: 042
     Dates: start: 20130313, end: 20130314
  6. HUMAN PROTEIN C [Suspect]
     Active Substance: PROTEIN C
     Indication: PROTEIN C DEFICIENCY
     Dosage: 2000 IU, 2X A DAY
     Route: 042
     Dates: start: 20130214, end: 20130214
  7. HUMAN PROTEIN C [Suspect]
     Active Substance: PROTEIN C
     Dosage: 2000 IU, 2X A DAY
     Route: 042
     Dates: start: 20130226, end: 20130226
  8. HUMAN PROTEIN C [Suspect]
     Active Substance: PROTEIN C
     Indication: PROPHYLAXIS
     Dosage: 2000 IU, 3X A DAY
     Route: 042
     Dates: start: 20130215, end: 20130218
  9. HUMAN PROTEIN C [Suspect]
     Active Substance: PROTEIN C
     Dosage: 2000 IU, 1X A DAY
     Route: 042
     Dates: start: 20020114
  10. HUMAN PROTEIN C [Suspect]
     Active Substance: PROTEIN C
     Dosage: 3000 IU, 1X A DAY
     Route: 042
     Dates: start: 20130308, end: 20130309
  11. HUMAN PROTEIN C [Suspect]
     Active Substance: PROTEIN C
     Dosage: 2000 IU, 2X A DAY
     Route: 042
     Dates: start: 20130313, end: 20130314
  12. HUMAN PROTEIN C [Suspect]
     Active Substance: PROTEIN C
     Dosage: 2000 IU, 2X A DAY
     Route: 042
     Dates: start: 20130219, end: 20130219
  13. HUMAN PROTEIN C [Suspect]
     Active Substance: PROTEIN C
     Dosage: 3000 IU, 3X A DAY
     Route: 042
     Dates: start: 20130227, end: 20130228
  14. HUMAN PROTEIN C [Suspect]
     Active Substance: PROTEIN C
     Dosage: 3000 IU, 3X A DAY
     Route: 042
     Dates: start: 20130301, end: 20130307
  15. HUMAN PROTEIN C [Suspect]
     Active Substance: PROTEIN C
     Dosage: 2000 IU, 3X A DAY
     Route: 042
     Dates: start: 20130310, end: 20130312

REACTIONS (2)
  - Pulmonary embolism [Recovered/Resolved with Sequelae]
  - Pneumonia [Recovered/Resolved with Sequelae]

NARRATIVE: CASE EVENT DATE: 20130214
